FAERS Safety Report 4380517-9 (Version None)
Quarter: 2004Q2

REPORT INFORMATION
  Report Type: 
  Country: None (occurrence: None)
  Receive Date: 20040614
  Receipt Date: 20040512
  Transmission Date: 20050107
  Serious: Yes (Hospitalization)
  Sender: FDA-Public Use
  Company Number: M04-341-152

PATIENT
  Age: 42 Year
  Sex: Female

DRUGS (1)
  1. VELCADE [Suspect]
     Dosage: 1.8 MG: INTRAVENOUS BOLUS
     Route: 040
     Dates: end: 20040423

REACTIONS (1)
  - DIARRHOEA [None]
